FAERS Safety Report 5468672-0 (Version None)
Quarter: 2007Q3

REPORT INFORMATION
  Report Type: 
  Country: None (occurrence: None)
  Receive Date: 20070926
  Receipt Date: 20070917
  Transmission Date: 20080115
  Serious: Yes (Hospitalization, Other)
  Sender: FDA-Public Use
  Company Number: US-PFIZER INC-2006091880

PATIENT
  Sex: Female
  Weight: 68 kg

DRUGS (4)
  1. BEXTRA [Suspect]
  2. VIOXX [Suspect]
     Indication: ARTHRITIS
  3. HYDROCODONE BITARTRATE [Concomitant]
     Indication: PAIN
     Dates: start: 20020501, end: 20040601
  4. NORVASC [Concomitant]
     Indication: CARDIAC DISORDER
     Dates: start: 20020701, end: 20040601

REACTIONS (1)
  - CEREBROVASCULAR ACCIDENT [None]
